FAERS Safety Report 4332325-2 (Version None)
Quarter: 2004Q2

REPORT INFORMATION
  Report Type: 
  Country: None (occurrence: None)
  Receive Date: 20040401
  Receipt Date: 20040308
  Transmission Date: 20050107
  Serious: Yes (Hospitalization)
  Sender: FDA-Public Use
  Company Number: 7624

PATIENT
  Age: 46 Year
  Sex: Male

DRUGS (2)
  1. LEUCOVORIN CALCIUM [Suspect]
     Indication: RECTAL CANCER
     Dosage: 75 MG, PO
     Route: 048
     Dates: start: 20030528, end: 20031014
  2. UFT [Suspect]
     Indication: RECTAL CANCER
     Dosage: 500 MG , PO
     Route: 048
     Dates: start: 20030528, end: 20031014

REACTIONS (1)
  - HEPATIC STEATOSIS [None]
